FAERS Safety Report 11927986 (Version 2)
Quarter: 2016Q2

REPORT INFORMATION
  Report Type: Spontaneous
  Country: US (occurrence: US)
  Receive Date: 20160119
  Receipt Date: 20160413
  Transmission Date: 20160815
  Serious: Yes (Other)
  Sender: FDA-Public Use
  Company Number: US-BAYER-2016-009173

PATIENT
  Sex: Female

DRUGS (5)
  1. CLARITIN [Suspect]
     Active Substance: LORATADINE
     Indication: OROPHARYNGEAL PAIN
     Dosage: UNK
     Route: 048
     Dates: start: 201601
  2. BAYER GENUINE ASPIRIN [Suspect]
     Active Substance: ASPIRIN
     Indication: GASTRIC ULCER
  3. OXYBUTYNIN [Concomitant]
     Active Substance: OXYBUTYNIN
  4. THYROID [Concomitant]
     Active Substance: LEVOTHYROXINE\LIOTHYRONINE
  5. SIMVASTATIN. [Concomitant]
     Active Substance: SIMVASTATIN

REACTIONS (6)
  - Gastrointestinal pain [Recovered/Resolved]
  - Irritable bowel syndrome [None]
  - Off label use [None]
  - Abdominal pain upper [None]
  - Gastric ulcer [Recovered/Resolved]
  - Medication monitoring error [None]

NARRATIVE: CASE EVENT DATE: 201511
